FAERS Safety Report 8364665-4 (Version None)
Quarter: 2012Q1

REPORT INFORMATION
  Report Type: 
  Country: None (occurrence: None)
  Receive Date: 20120323
  Receipt Date: 20111205
  Transmission Date: 20120608
  Serious: Yes (Other)
  Sender: FDA-Public Use
  Company Number: 163-21880-11120785

PATIENT
  Age: 63 Year
  Sex: Male

DRUGS (1)
  1. REVLIMID [Suspect]
     Dosage: 25 MG, 1 IN 1 D, PO
     Route: 048
     Dates: start: 20100701

REACTIONS (1)
  - THROMBOSIS [None]
